FAERS Safety Report 18920993 (Version 2)
Quarter: 2021Q1

REPORT INFORMATION
  Report Type: Spontaneous
  Country: DE (occurrence: DE)
  Receive Date: 20210222
  Receipt Date: 20210226
  Transmission Date: 20210420
  Serious: No
  Sender: FDA-Public Use
  Company Number: NVSC2021DE037462

PATIENT
  Sex: Male

DRUGS (1)
  1. SEEBRI [Suspect]
     Active Substance: GLYCOPYRROLATE
     Indication: ASTHMA
     Dosage: UNK
     Route: 065
     Dates: start: 20140916, end: 20210205

REACTIONS (1)
  - Drug ineffective [Unknown]
